FAERS Safety Report 8291630-8 (Version None)
Quarter: 2012Q2

REPORT INFORMATION
  Report Type: 
  Country: None (occurrence: None)
  Receive Date: 20120417
  Receipt Date: 20120123
  Transmission Date: 20120825
  Serious: No
  Sender: FDA-Public Use
  Company Number: US-ASTRAZENECA-2011SE27092

PATIENT
  Age: 42 Year
  Sex: Female

DRUGS (2)
  1. NEXIUM [Suspect]
     Route: 048
  2. PRILOSEC OTC [Suspect]
     Route: 048

REACTIONS (5)
  - DIARRHOEA [None]
  - DRUG DOSE OMISSION [None]
  - DYSPEPSIA [None]
  - VISUAL IMPAIRMENT [None]
  - MALAISE [None]
